FAERS Safety Report 9777965 (Version 1)
Quarter: 2013Q4

REPORT INFORMATION
  Report Type: Spontaneous
  Country: MX (occurrence: MX)
  Receive Date: 20131223
  Receipt Date: 20131223
  Transmission Date: 20140711
  Serious: Yes (Hospitalization)
  Sender: FDA-Public Use
  Company Number: MX-AMGEN-MEXSP2013089392

PATIENT
  Age: 48 Year
  Sex: Female

DRUGS (4)
  1. NEUPOGEN [Suspect]
     Indication: PRODUCT USED FOR UNKNOWN INDICATION
     Dosage: 300 MUG, CYCLE 2, 5 DOSES ADMINISTERED IN DAY 8-12
     Route: 065
  2. NEUPOGEN [Suspect]
     Dosage: 300 MUG, CYCLE 2, 6 DOSES ADMINISTERED IN DAY 8-13
     Route: 065
  3. ETOPOSIDE [Suspect]
     Indication: PRODUCT USED FOR UNKNOWN INDICATION
     Dosage: (450 MG, 1 IN 1 M) DAY 3 EVERY 1 MONTH
     Route: 065
  4. CYTARABINE [Suspect]
     Indication: PRODUCT USED FOR UNKNOWN INDICATION
     Dosage: (3500 MG, 1 IN 1 M) DAY 3 EVERY 1 MONTH
     Route: 065

REACTIONS (2)
  - Febrile neutropenia [Unknown]
  - Neutropenia [Unknown]
